FAERS Safety Report 17324197 (Version 6)
Quarter: 2020Q4

REPORT INFORMATION
  Report Type: Spontaneous
  Country: US (occurrence: US)
  Receive Date: 20200127
  Receipt Date: 20201209
  Transmission Date: 20210113
  Serious: Yes (Other)
  Sender: FDA-Public Use
  Company Number: US-GILEAD-2020-0448289

PATIENT
  Age: 53 Year
  Sex: Male
  Weight: 88.89 kg

DRUGS (54)
  1. NEPHPLEX RX [Concomitant]
     Active Substance: ASCORBIC ACID\BIOTIN\COBALAMIN\FOLIC ACID\NIACINAMIDE\PANTOTHENIC ACID\PYRIDOXINE HYDROCHLORIDE\RIBOFLAVIN\THIAMINE\ZINC OXIDE
  2. BACTRIM [Concomitant]
     Active Substance: SULFAMETHOXAZOLE\TRIMETHOPRIM
  3. CYCLOSPORINE. [Concomitant]
     Active Substance: CYCLOSPORINE
  4. SIMVASTATIN. [Concomitant]
     Active Substance: SIMVASTATIN
  5. NORVIR [Concomitant]
     Active Substance: RITONAVIR
  6. TIVICAY [Concomitant]
     Active Substance: DOLUTEGRAVIR SODIUM
  7. LYRICA [Concomitant]
     Active Substance: PREGABALIN
  8. EMTRIVA [Concomitant]
     Active Substance: EMTRICITABINE
  9. CALCIUM [Concomitant]
     Active Substance: CALCIUM
  10. SEVELAMER HCL [Concomitant]
     Active Substance: SEVELAMER HYDROCHLORIDE
  11. OMEPRAZOLE. [Concomitant]
     Active Substance: OMEPRAZOLE
  12. CLOBETASOL [Concomitant]
     Active Substance: CLOBETASOL
  13. LEVAQUIN [Concomitant]
     Active Substance: LEVOFLOXACIN
  14. PRAVACHOL [Concomitant]
     Active Substance: PRAVASTATIN SODIUM
  15. NORTRIPTYLINE [Concomitant]
     Active Substance: NORTRIPTYLINE
  16. VIREAD [Suspect]
     Active Substance: TENOFOVIR DISOPROXIL FUMARATE
     Indication: HIV INFECTION
     Dosage: UNK
     Route: 048
     Dates: start: 20080307, end: 20190220
  17. VIREAD [Suspect]
     Active Substance: TENOFOVIR DISOPROXIL FUMARATE
     Dosage: UNK
     Route: 048
     Dates: start: 201902, end: 20190220
  18. VITAMIN D [VITAMIN D NOS] [Concomitant]
     Active Substance: VITAMIN D NOS
  19. TRAMADOL. [Concomitant]
     Active Substance: TRAMADOL
  20. PEG 3350 [Concomitant]
     Active Substance: POLYETHYLENE GLYCOL 3350
  21. NIZORAL CONDITIONE [Concomitant]
  22. SENNA ACUTIFOLIA [Concomitant]
  23. POLYETHYLENE GLYCOL 3350. [Concomitant]
     Active Substance: POLYETHYLENE GLYCOL 3350
  24. PRAVASTATIN. [Concomitant]
     Active Substance: PRAVASTATIN
  25. ZIAGEN [Concomitant]
     Active Substance: ABACAVIR SULFATE
  26. ATARAX ANTI ITCH LOTION [Concomitant]
  27. IMODIUM [Concomitant]
     Active Substance: LOPERAMIDE HYDROCHLORIDE
  28. LOPRESSOR [Concomitant]
     Active Substance: METOPROLOL TARTRATE
  29. CIPROFLOXACIN. [Concomitant]
     Active Substance: CIPROFLOXACIN
  30. VIAGRA [Concomitant]
     Active Substance: SILDENAFIL CITRATE
  31. COLACE [Concomitant]
     Active Substance: DOCUSATE SODIUM
  32. MULTIVITAMINS [VITAMINS NOS] [Concomitant]
     Active Substance: VITAMINS
  33. ESOMEPRAZOLE. [Concomitant]
     Active Substance: ESOMEPRAZOLE MAGNESIUM
  34. LASIX [Concomitant]
     Active Substance: FUROSEMIDE
  35. PREDNISOLONE. [Concomitant]
     Active Substance: PREDNISOLONE
  36. RETROVIR [Concomitant]
     Active Substance: ZIDOVUDINE
  37. ACETAMINOPHEN. [Concomitant]
     Active Substance: ACETAMINOPHEN
  38. TENOFOVIR DISOPROXIL FUMARATE. [Suspect]
     Active Substance: TENOFOVIR DISOPROXIL FUMARATE
     Indication: HIV INFECTION
     Dosage: UNK
     Route: 048
     Dates: start: 20190220
  39. VANCOMYCIN [Concomitant]
     Active Substance: VANCOMYCIN
  40. GUAIFENESIN. [Concomitant]
     Active Substance: GUAIFENESIN
  41. MINOCYCLINE [Concomitant]
     Active Substance: MINOCYCLINE HYDROCHLORIDE
  42. AZITHROMYCIN ANHYDROUS. [Concomitant]
     Active Substance: AZITHROMYCIN ANHYDROUS
  43. GABAPENTIN. [Concomitant]
     Active Substance: GABAPENTIN
  44. ASPIRIN [ACETYLSALICYLIC ACID] [Concomitant]
     Active Substance: ASPIRIN
  45. CORTISONE [Concomitant]
     Active Substance: CORTISONE
  46. HEPARIN [Concomitant]
     Active Substance: HEPARIN SODIUM
  47. PREZISTA [Concomitant]
     Active Substance: DARUNAVIR ETHANOLATE
  48. RESTASIS [Concomitant]
     Active Substance: CYCLOSPORINE
  49. MIRALAX [Concomitant]
     Active Substance: POLYETHYLENE GLYCOL 3350
  50. DOCUSATE [Concomitant]
     Active Substance: DOCUSATE
  51. IBUPROFEN. [Concomitant]
     Active Substance: IBUPROFEN
  52. DICLOFENAC [Concomitant]
     Active Substance: DICLOFENAC
  53. NEXIUM [Concomitant]
     Active Substance: ESOMEPRAZOLE MAGNESIUM
  54. NAPROXEN. [Concomitant]
     Active Substance: NAPROXEN

REACTIONS (9)
  - End stage renal disease [Not Recovered/Not Resolved]
  - Tooth injury [Unknown]
  - Chronic kidney disease [Not Recovered/Not Resolved]
  - Osteonecrosis [Not Recovered/Not Resolved]
  - Blood creatinine increased [Not Recovered/Not Resolved]
  - Osteoporosis [Not Recovered/Not Resolved]
  - Emotional distress [Unknown]
  - Pain [Unknown]
  - Osteopenia [Not Recovered/Not Resolved]

NARRATIVE: CASE EVENT DATE: 20080211
